FAERS Safety Report 6224610-4 (Version None)
Quarter: 2009Q2

REPORT INFORMATION
  Report Type: 
  Country: None (occurrence: None)
  Receive Date: 20090612
  Receipt Date: 20090325
  Transmission Date: 20091009
  Serious: No
  Sender: FDA-Public Use
  Company Number: US-ABBOTT-09P-163-0564544-00

PATIENT
  Sex: Female
  Weight: 88.984 kg

DRUGS (10)
  1. HUMIRA [Suspect]
     Indication: RHEUMATOID ARTHRITIS
     Route: 058
     Dates: start: 20090206
  2. METHOTREXATE [Concomitant]
     Indication: RHEUMATOID ARTHRITIS
     Route: 048
  3. PREDNISONE [Concomitant]
     Indication: RHEUMATOID ARTHRITIS
     Route: 048
  4. ENDOCET [Concomitant]
     Indication: PAIN
     Route: 048
     Dates: start: 20090301
  5. ATENOLOL [Concomitant]
     Indication: HYPERTENSION
  6. AMITRIPTYLINE HCL [Concomitant]
     Indication: DEPRESSION
     Route: 048
  7. PROZAC [Concomitant]
     Indication: DEPRESSION
     Route: 048
  8. CALTRATE [Concomitant]
     Indication: MEDICAL DIET
     Route: 048
  9. LYRICA [Concomitant]
     Indication: NEUROPATHY PERIPHERAL
     Route: 048
  10. DOXYCYCLINE [Concomitant]
     Indication: ARTHRITIS
     Route: 048

REACTIONS (4)
  - ARTHRALGIA [None]
  - INCORRECT DOSE ADMINISTERED [None]
  - INJECTION SITE HAEMORRHAGE [None]
  - INJECTION SITE IRRITATION [None]
